FAERS Safety Report 8616086-4 (Version None)
Quarter: 2012Q3

REPORT INFORMATION
  Report Type: 
  Country: None (occurrence: None)
  Receive Date: 20120823
  Receipt Date: 20110928
  Transmission Date: 20120928
  Serious: Yes (Other)
  Sender: FDA-Public Use
  Company Number: RU-ROCHE-1000652

PATIENT
  Sex: Female

DRUGS (3)
  1. PACLITAXEL [Concomitant]
     Indication: OVARIAN CANCER
     Dosage: DAYS 1, 8, 15
     Route: 042
  2. CARBOPLATIN [Concomitant]
     Indication: OVARIAN CANCER
     Dosage: 6 AUC
     Route: 042
  3. AVASTIN [Suspect]
     Indication: OVARIAN CANCER
     Route: 042

REACTIONS (5)
  - NEUTROPENIA [None]
  - EYE HAEMORRHAGE [None]
  - ARTHRALGIA [None]
  - POLYNEUROPATHY [None]
  - CEREBRAL ISCHAEMIA [None]
